FAERS Safety Report 14961706 (Version 2)
Quarter: 2019Q3

REPORT INFORMATION
  Report Type: Spontaneous
  Country: DE (occurrence: DE)
  Receive Date: 20180601
  Receipt Date: 20190830
  Transmission Date: 20191004
  Serious: Yes (Hospitalization, Other)
  Sender: FDA-Public Use
  Company Number: DE-DRREDDYS-GER/GER/18/0099620

PATIENT
  Age: 48 Year
  Sex: Female
  Weight: 107 kg

DRUGS (6)
  1. TAZOBACTAM [Suspect]
     Active Substance: TAZOBACTAM
     Indication: UROSEPSIS
     Dosage: 4.5 GRAM, TID
     Route: 065
     Dates: start: 20180206, end: 20180211
  2. TAZOBACTAM [Suspect]
     Active Substance: TAZOBACTAM
     Route: 065
     Dates: start: 20180211, end: 20180211
  3. PANTOPRAZOLE [Suspect]
     Active Substance: PANTOPRAZOLE
     Indication: GASTRITIS
     Dosage: 80 MG BID
     Route: 048
     Dates: start: 20180208, end: 20180212
  4. MIDOSTAURIN [Suspect]
     Active Substance: MIDOSTAURIN
     Route: 048
     Dates: start: 20180308
  5. PANTOPRAZOLE [Suspect]
     Active Substance: PANTOPRAZOLE
     Route: 048
     Dates: start: 20180212
  6. MIDOSTAURIN [Suspect]
     Active Substance: MIDOSTAURIN
     Indication: ACUTE MYELOID LEUKAEMIA
     Route: 048
     Dates: start: 20180110, end: 20180110

REACTIONS (2)
  - Urosepsis [Recovered/Resolved]
  - Transaminases increased [Not Recovered/Not Resolved]

NARRATIVE: CASE EVENT DATE: 20180206
